FAERS Safety Report 4439621-9 (Version None)
Quarter: 2004Q3

REPORT INFORMATION
  Report Type: 
  Country: None (occurrence: None)
  Receive Date: 20040901
  Receipt Date: 20040901
  Transmission Date: 20050211
  Serious: Yes (Hospitalization)
  Sender: FDA-Public Use
  Company Number: None

PATIENT
  Sex: Female
  Weight: 90.7194 kg

DRUGS (1)
  1. OVCON-50 [Suspect]
     Indication: UTERINE HAEMORRHAGE
     Dosage: ONE PO QD
     Route: 048
     Dates: start: 20040101

REACTIONS (3)
  - OEDEMA PERIPHERAL [None]
  - PULMONARY EMBOLISM [None]
  - TENDERNESS [None]
